FAERS Safety Report 6208034-1 (Version None)
Quarter: 2009Q2

REPORT INFORMATION
  Report Type: 
  Country: None (occurrence: None)
  Receive Date: 20090529
  Receipt Date: 20090225
  Transmission Date: 20091009
  Serious: No
  Sender: FDA-Public Use
  Company Number: US-KINGPHARMUSA00001-K200900204

PATIENT
  Age: 86 Year
  Sex: Male

DRUGS (10)
  1. FLECTOR [Suspect]
     Indication: PAIN
     Dosage: 1 PATCH, PRN
     Route: 061
     Dates: start: 20090201, end: 20090201
  2. MYSOLINE [Concomitant]
     Indication: TREMOR
     Dosage: 25 MG, QD
     Route: 048
  3. CENTRUM SILVER                     /01292501/ [Concomitant]
     Dosage: UNK
     Route: 048
  4. GLUCOSAMINE [Concomitant]
     Dosage: UNK
     Route: 048
  5. VITAMIN C                          /00008001/ [Concomitant]
     Dosage: UNK
     Route: 048
  6. VITAMIN B6 [Concomitant]
     Dosage: UNK
     Route: 048
  7. GRAPE SEED                         /01364603/ [Concomitant]
     Dosage: UNK
     Route: 048
  8. B COMPLEX                          /00212701/ [Concomitant]
     Dosage: UNK
     Route: 048
  9. MAGNESIUM ASPARTATE [Concomitant]
     Dosage: UNK
     Route: 048
  10. VITAMIN A [Concomitant]
     Dosage: UNK
     Route: 048

REACTIONS (1)
  - DRUG INEFFECTIVE [None]
